FAERS Safety Report 21925692 (Version 1)
Quarter: 2023Q1

REPORT INFORMATION
  Report Type: Report from Study
  Country: US (occurrence: US)
  Receive Date: 20230130
  Receipt Date: 20230130
  Transmission Date: 20230417
  Serious: No
  Sender: FDA-Public Use
  Company Number: US-INCYTE CORPORATION-2022IN012521

PATIENT

DRUGS (1)
  1. JAKAFI [Suspect]
     Active Substance: RUXOLITINIB
     Indication: Myelofibrosis
     Route: 065

REACTIONS (5)
  - Cerebral disorder [Unknown]
  - Confusional state [Unknown]
  - Memory impairment [Unknown]
  - Thinking abnormal [Unknown]
  - Condition aggravated [Unknown]
